FAERS Safety Report 14484883 (Version 1)
Quarter: 2018Q1

REPORT INFORMATION
  Report Type: Spontaneous
  Country: US (occurrence: US)
  Receive Date: 20180205
  Receipt Date: 20180205
  Transmission Date: 20180509
  Serious: No
  Sender: FDA-Public Use
  Company Number: US-VERTEX PHARMACEUTICALS-2018-000827

PATIENT
  Sex: Male
  Weight: 63 kg

DRUGS (1)
  1. ORKAMBI [Suspect]
     Active Substance: IVACAFTOR\LUMACAFTOR
     Indication: CYSTIC FIBROSIS
     Dosage: 2 TABS (200/125 MG, EACH) BID
     Route: 048

REACTIONS (3)
  - Sinusitis [Unknown]
  - Respiratory tract infection [Unknown]
  - Depression [Not Recovered/Not Resolved]
